FAERS Safety Report 8853794 (Version 2)
Quarter: 2012Q4

REPORT INFORMATION
  Report Type: 
  Country: JP (occurrence: JP)
  Receive Date: 20121022
  Receipt Date: 20121109
  Transmission Date: 20130627
  Serious: Yes (Death)
  Sender: FDA-Public Use
  Company Number: JP-OTSUKA-JP-2012-16602

PATIENT
  Age: 85 Year
  Sex: Female

DRUGS (1)
  1. SAMSCA [Suspect]
     Dosage: 15 Mg milligram(s), daily dose
     Route: 048

REACTIONS (2)
  - Cardiac failure [Fatal]
  - Cardiac failure [None]
